FAERS Safety Report 11647396 (Version 1)
Quarter: 2015Q4

REPORT INFORMATION
  Report Type: Spontaneous
  Country: US (occurrence: None)
  Receive Date: 20151019
  Receipt Date: 20151019
  Transmission Date: 20160304
  Serious: No
  Sender: FDA-Public Use
  Company Number: None

PATIENT
  Age: 53 Year
  Sex: Female
  Weight: 74.84 kg

DRUGS (4)
  1. NORCO [Concomitant]
     Active Substance: ACETAMINOPHEN\HYDROCODONE BITARTRATE
  2. GABAPENTIN. [Suspect]
     Active Substance: GABAPENTIN
     Indication: CERVICAL RADICULOPATHY
     Route: 048
     Dates: start: 20151010, end: 20151011
  3. MULTIPLE VITAMIN [Concomitant]
     Active Substance: VITAMINS
  4. IBUPROFEN. [Concomitant]
     Active Substance: IBUPROFEN

REACTIONS (4)
  - Pain [None]
  - Pain in extremity [None]
  - Somnolence [None]
  - Middle insomnia [None]

NARRATIVE: CASE EVENT DATE: 20151010
